FAERS Safety Report 4666110-9 (Version None)
Quarter: 2005Q2

REPORT INFORMATION
  Report Type: 
  Country: None (occurrence: None)
  Receive Date: 20050519
  Receipt Date: 20050511
  Transmission Date: 20051028
  Serious: Yes (Hospitalization, Other)
  Sender: FDA-Public Use
  Company Number: US-JNJFOC-20050502906

PATIENT
  Sex: Female

DRUGS (1)
  1. ELMIRON [Suspect]
     Indication: CYSTITIS INTERSTITIAL
     Route: 049

REACTIONS (5)
  - BLADDER PAIN [None]
  - CEREBROVASCULAR ACCIDENT [None]
  - INSOMNIA [None]
  - MYOCARDIAL INFARCTION [None]
  - SUICIDAL IDEATION [None]
